FAERS Safety Report 7564460-X (Version None)
Quarter: 2011Q2

REPORT INFORMATION
  Report Type: 
  Country: None (occurrence: None)
  Receive Date: 20110622
  Receipt Date: 20110615
  Transmission Date: 20111010
  Serious: Yes (Hospitalization)
  Sender: FDA-Public Use
  Company Number: PHHO2010DE17813

PATIENT
  Sex: Male
  Weight: 82 kg

DRUGS (3)
  1. CERTICAN [Suspect]
     Indication: RENAL TRANSPLANT
     Dosage: UNK
     Route: 048
     Dates: start: 20100414, end: 20101125
  2. AEB071 [Suspect]
     Indication: RENAL TRANSPLANT
     Dosage: UNK
     Route: 048
     Dates: start: 20100414, end: 20101125
  3. METHYLPREDNISOLONE [Concomitant]

REACTIONS (2)
  - PROTEINURIA [None]
  - GLOMERULONEPHRITIS [None]
